FAERS Safety Report 5613357-0 (Version None)
Quarter: 2008Q1

REPORT INFORMATION
  Report Type: 
  Country: None (occurrence: None)
  Receive Date: 20080129
  Receipt Date: 20080122
  Transmission Date: 20080703
  Serious: Yes (Hospitalization)
  Sender: FDA-Public Use
  Company Number: 2008SP001811

PATIENT
  Age: 70 Year
  Sex: Male

DRUGS (4)
  1. TEMODAL [Suspect]
     Indication: DRUG USE FOR UNKNOWN INDICATION
     Dosage: 150 MG/M2; QD; PO
     Route: 048
     Dates: start: 20070926, end: 20080109
  2. GASTER [Concomitant]
  3. PHENOBAL [Concomitant]
  4. BETAMETHASONE [Concomitant]

REACTIONS (2)
  - DEEP VEIN THROMBOSIS [None]
  - PULMONARY EMBOLISM [None]
